FAERS Safety Report 21515394 (Version 1)
Quarter: 2022Q4

REPORT INFORMATION
  Report Type: Spontaneous
  Country: IT (occurrence: IT)
  Receive Date: 20221027
  Receipt Date: 20221027
  Transmission Date: 20230112
  Serious: Yes (Other)
  Sender: FDA-Public Use
  Company Number: None

PATIENT
  Age: 47 Year
  Sex: Female
  Weight: 74 kg

DRUGS (2)
  1. IXEKIZUMAB [Suspect]
     Active Substance: IXEKIZUMAB
     Indication: Psoriasis
     Dosage: 80 MG, OTHER, EVERY TWO WEEKS
     Route: 058
     Dates: start: 20180801
  2. IXEKIZUMAB [Suspect]
     Active Substance: IXEKIZUMAB
     Dosage: 80 MG, OTHER, EVERY FOUR WEEKS
     Route: 058
     Dates: end: 20220629

REACTIONS (3)
  - Eczema [Not Recovered/Not Resolved]
  - Condition aggravated [Not Recovered/Not Resolved]
  - Loss of therapeutic response [Not Recovered/Not Resolved]

NARRATIVE: CASE EVENT DATE: 20220210
